FAERS Safety Report 25096534 (Version 1)
Quarter: 2025Q1

REPORT INFORMATION
  Report Type: Spontaneous
  Country: CN (occurrence: CN)
  Receive Date: 20250319
  Receipt Date: 20250319
  Transmission Date: 20250408
  Serious: Yes (Hospitalization, Disabling, Other)
  Sender: NOVARTIS
  Company Number: CN-002147023-NVSC2025CN043381

PATIENT
  Age: 48 Year
  Sex: Female
  Weight: 60 kg

DRUGS (2)
  1. CARBAMAZEPINE [Suspect]
     Active Substance: CARBAMAZEPINE
     Indication: Epilepsy
     Dosage: 200.000 MG, BID
     Route: 048
     Dates: start: 20200201, end: 20250304
  2. VALPROATE SODIUM [Suspect]
     Active Substance: VALPROATE SODIUM
     Indication: Epilepsy
     Dosage: 200.000 MG, TID
     Route: 048
     Dates: start: 20200201, end: 20250304

REACTIONS (5)
  - Liver injury [Recovering/Resolving]
  - Loss of consciousness [Unknown]
  - Drug-induced liver injury [Unknown]
  - Muscle twitching [Unknown]
  - Status epilepticus [Unknown]

NARRATIVE: CASE EVENT DATE: 20250304
